FAERS Safety Report 7679426-9 (Version None)
Quarter: 2011Q3

REPORT INFORMATION
  Report Type: 
  Country: None (occurrence: None)
  Receive Date: 20110812
  Receipt Date: 20110801
  Transmission Date: 20111222
  Serious: Yes (Hospitalization)
  Sender: FDA-Public Use
  Company Number: US-JNJFOC-20091008095

PATIENT
  Sex: Male
  Weight: 31.7 kg

DRUGS (5)
  1. ALL OTHER THERAPEUTIC AGENTS [Concomitant]
  2. INFLIXIMAB [Suspect]
     Route: 042
     Dates: start: 20080717
  3. INFLIXIMAB [Suspect]
     Dosage: TOTAL 6 DOSES
     Route: 042
     Dates: start: 20090417
  4. 5-AMINOSALICYLIC ACID [Concomitant]
  5. INFLIXIMAB [Suspect]
     Indication: CROHN'S DISEASE
     Route: 042
     Dates: start: 20090805

REACTIONS (2)
  - FAILURE TO THRIVE [None]
  - CROHN'S DISEASE [None]
